FAERS Safety Report 4450268-0 (Version None)
Quarter: 2004Q3

REPORT INFORMATION
  Report Type: 
  Country: None (occurrence: None)
  Receive Date: 20040914
  Receipt Date: 20040831
  Transmission Date: 20050211
  Serious: Yes (Hospitalization)
  Sender: FDA-Public Use
  Company Number: 189902

PATIENT
  Age: 71 Year
  Sex: Female

DRUGS (18)
  1. AVONEX [Suspect]
     Indication: MULTIPLE SCLEROSIS
     Dosage: 30 MCG QW IM
     Route: 030
     Dates: start: 19970201
  2. AVONEX [Suspect]
     Indication: MULTIPLE SCLEROSIS
     Dosage: 30 MCG QW IM
     Route: 030
  3. DITROPAN [Concomitant]
  4. ESTRADIOL [Concomitant]
  5. LOTENSIN [Concomitant]
  6. ZOLOFT [Concomitant]
  7. MULTI-VITAMINS [Concomitant]
  8. NEURONTIN [Concomitant]
  9. VIOXX [Concomitant]
  10. VICODIN [Concomitant]
  11. LASIX [Concomitant]
  12. ACIDOPHILUS [Concomitant]
  13. CALCIUM [Concomitant]
  14. FOLIC ACID [Concomitant]
  15. VITAMIN C [Concomitant]
  16. VITAMIN E [Concomitant]
  17. PROVIGIL [Concomitant]
  18. ZANAFLEX [Concomitant]

REACTIONS (6)
  - BACTERIAL INFECTION [None]
  - CLOSTRIDIUM COLITIS [None]
  - COLITIS [None]
  - ENTEROCOCCAL INFECTION [None]
  - GASTROINTESTINAL INFECTION [None]
  - URINARY TRACT INFECTION ENTEROCOCCAL [None]
